FAERS Safety Report 5354408-0 (Version None)
Quarter: 2007Q2

REPORT INFORMATION
  Report Type: 
  Country: None (occurrence: None)
  Receive Date: 20070612
  Receipt Date: 20070601
  Transmission Date: 20071010
  Serious: Yes (Hospitalization)
  Sender: FDA-Public Use
  Company Number: CH-JNJFOC-20070402638

PATIENT
  Age: 84 Year
  Sex: Female

DRUGS (9)
  1. ACETAMINOPHEN AND TRAMADOL HCL [Suspect]
     Indication: DRUG USE FOR UNKNOWN INDICATION
     Route: 048
  2. EFFEXOR [Interacting]
     Indication: DRUG USE FOR UNKNOWN INDICATION
     Route: 048
  3. SEROQUEL [Concomitant]
     Route: 065
  4. ASPIRIN [Concomitant]
     Route: 065
  5. DIGOXINE LABATEC [Concomitant]
     Route: 065
  6. COVERSUM [Concomitant]
     Route: 065
  7. DILZEM [Concomitant]
     Route: 065
  8. TORSEMIDE [Concomitant]
     Route: 065
  9. CALCIMAGON-D3 [Concomitant]
     Route: 065

REACTIONS (5)
  - DEHYDRATION [None]
  - DEPRESSED LEVEL OF CONSCIOUSNESS [None]
  - DRUG INTERACTION [None]
  - FALL [None]
  - SEROTONIN SYNDROME [None]
